FAERS Safety Report 5473065-6 (Version None)
Quarter: 2007Q4

REPORT INFORMATION
  Report Type: 
  Country: None (occurrence: None)
  Receive Date: 20071001
  Receipt Date: 20070308
  Transmission Date: 20080405
  Serious: No
  Sender: FDA-Public Use
  Company Number: US-ASTRAZENECA-2007UW04350

PATIENT
  Age: 63 Year
  Sex: Female

DRUGS (10)
  1. ARIMIDEX [Suspect]
     Indication: BREAST CANCER
     Route: 048
     Dates: start: 20060801
  2. NEXIUM [Concomitant]
     Route: 048
  3. DOXYCYCLINE [Concomitant]
  4. TOPROL-XL [Concomitant]
     Route: 048
  5. ZYRTEC [Concomitant]
  6. CITRICAL [Concomitant]
  7. ACTOS [Concomitant]
  8. ACTONEL [Concomitant]
  9. MOBIC [Concomitant]
  10. VYTORIN [Concomitant]

REACTIONS (1)
  - CARBOHYDRATE ANTIGEN 125 INCREASED [None]
